FAERS Safety Report 9456957 (Version 1)
Quarter: 2013Q3

REPORT INFORMATION
  Report Type: Report from Study
  Country: US (occurrence: US)
  Receive Date: 20130814
  Receipt Date: 20130814
  Transmission Date: 20140515
  Serious: Yes (Other)
  Sender: FDA-Public Use
  Company Number: US-ASTRAZENECA-2013SE61357

PATIENT
  Sex: Female

DRUGS (1)
  1. ANASTROZOLE [Suspect]
     Indication: BREAST CANCER
     Route: 048
     Dates: start: 2013, end: 2013

REACTIONS (10)
  - Palpitations [Unknown]
  - Drug intolerance [Unknown]
  - Feeling abnormal [Unknown]
  - Nervousness [Unknown]
  - Weight decreased [Unknown]
  - Hypotension [Unknown]
  - Hot flush [Unknown]
  - Alopecia [Unknown]
  - Nausea [Unknown]
  - Decreased appetite [Unknown]
